FAERS Safety Report 9925297 (Version 1)
Quarter: 2014Q1

REPORT INFORMATION
  Report Type: Spontaneous
  Country: US (occurrence: US)
  Receive Date: 20140226
  Receipt Date: 20140226
  Transmission Date: 20141002
  Serious: Yes (Other)
  Sender: FDA-Public Use
  Company Number: US-EISAI INC-E7389-04777-SPO-US

PATIENT
  Age: 71 Year
  Sex: Female

DRUGS (6)
  1. HALAVEN [Suspect]
     Indication: BREAST CANCER METASTATIC
     Dosage: 1.4 MG/M2
     Route: 041
     Dates: start: 20140206
  2. ARMOUR THYROID [Concomitant]
     Indication: HYPOTHYROIDISM
     Dosage: 120MG DAILY
     Route: 065
     Dates: end: 201402
  3. ARMOUR THYROID [Concomitant]
     Dosage: DOSE CHANGED
     Route: 065
     Dates: start: 201402
  4. OXYCONTIN [Concomitant]
     Indication: PAIN
     Dosage: UNKNOWN
     Route: 065
  5. OXYCODONE [Concomitant]
     Indication: PAIN
     Dosage: UNKNOWN
     Route: 065
  6. PRILOSEC [Concomitant]
     Dosage: UNKNOWN
     Route: 065

REACTIONS (1)
  - Atrial fibrillation [Recovered/Resolved]
